FAERS Safety Report 12909280 (Version 3)
Quarter: 2016Q4

REPORT INFORMATION
  Report Type: Report from Study
  Country: US (occurrence: US)
  Receive Date: 20161104
  Receipt Date: 20161121
  Transmission Date: 20170207
  Serious: Yes (Other)
  Sender: FDA-Public Use
  Company Number: US-UCBSA-2016039370

PATIENT
  Age: 59 Year
  Sex: Female
  Weight: 47 kg

DRUGS (10)
  1. CERTOLIZUMAB PEGOL [Suspect]
     Active Substance: CERTOLIZUMAB PEGOL
     Indication: CROHN^S DISEASE
     Dosage: 400 MG, EV 2 WEEKS(QOW)
     Route: 058
     Dates: start: 20160922, end: 20161020
  2. CERTOLIZUMAB PEGOL [Suspect]
     Active Substance: CERTOLIZUMAB PEGOL
     Dosage: 400 MG, EV 4 WEEKS
     Dates: start: 201611
  3. CALCIUM [Concomitant]
     Active Substance: CALCIUM
     Indication: OSTEOPOROSIS
     Dosage: UNK, ONCE DAILY (QD)
     Route: 048
  4. DOXYCYCLINE. [Concomitant]
     Active Substance: DOXYCYCLINE
     Indication: URINARY TRACT INFECTION
     Dosage: UNK
  5. ENTOCORT [Concomitant]
     Active Substance: BUDESONIDE
     Indication: PRODUCT USED FOR UNKNOWN INDICATION
     Dosage: 9 MG, ONCE DAILY (QD)
     Route: 048
     Dates: start: 20161101
  6. BONIVA [Concomitant]
     Active Substance: IBANDRONATE SODIUM
     Indication: OSTEOPOROSIS
     Dosage: UNK, EV 3 MONTHS
     Route: 042
  7. OMEPRAZOLE. [Concomitant]
     Active Substance: OMEPRAZOLE
     Indication: DYSPEPSIA
     Dosage: 40 MG, ONCE DAILY (QD)
     Route: 048
  8. VITAMIN D [Concomitant]
     Active Substance: CHOLECALCIFEROL
     Indication: OSTEOPOROSIS
     Dosage: 5000 DAILY
     Route: 048
  9. LEVOFLOXACIN. [Concomitant]
     Active Substance: LEVOFLOXACIN
     Indication: PRODUCT USED FOR UNKNOWN INDICATION
     Dosage: 750 MG, ONCE DAILY (QD)
  10. VITAMIN B12 [Concomitant]
     Active Substance: CYANOCOBALAMIN
     Indication: PRODUCT USED FOR UNKNOWN INDICATION
     Dosage: UNK, MONTHLY (QM)

REACTIONS (9)
  - Pneumonia [Unknown]
  - Injection site rash [Recovered/Resolved]
  - Stomatitis [Recovered/Resolved]
  - Weight decreased [Unknown]
  - Emphysema [Not Recovered/Not Resolved]
  - Dyspnoea [Not Recovered/Not Resolved]
  - Urinary tract infection [Unknown]
  - Diarrhoea [Not Recovered/Not Resolved]
  - Mouth swelling [Recovered/Resolved]

NARRATIVE: CASE EVENT DATE: 2016
